FAERS Safety Report 23668868 (Version 2)
Quarter: 2024Q2

REPORT INFORMATION
  Report Type: Spontaneous
  Country: US (occurrence: US)
  Receive Date: 20240325
  Receipt Date: 20240416
  Transmission Date: 20240716
  Serious: Yes (Death, Life-Threatening, Hospitalization, Other)
  Sender: FDA-Public Use
  Company Number: US-009507513-2403USA006414

PATIENT
  Age: 84 Year
  Sex: Male

DRUGS (1)
  1. KEYTRUDA [Suspect]
     Active Substance: PEMBROLIZUMAB
     Indication: Malignant melanoma
     Dosage: UNK UNK, Q3W
     Route: 042
     Dates: start: 20240108, end: 20240108

REACTIONS (9)
  - COVID-19 [Fatal]
  - Cardiac arrest [Fatal]
  - Cardiomyopathy [Fatal]
  - Clostridium difficile infection [Fatal]
  - Lactic acidosis [Fatal]
  - Chronic hepatic failure [Unknown]
  - Bacterial infection [Unknown]
  - Chronic kidney disease [Unknown]
  - White blood cell count decreased [Unknown]

NARRATIVE: CASE EVENT DATE: 20240101
